FAERS Safety Report 13480679 (Version 15)
Quarter: 2019Q4

REPORT INFORMATION
  Report Type: Report from Study
  Country: US (occurrence: US)
  Receive Date: 20170425
  Receipt Date: 20191120
  Transmission Date: 20200122
  Serious: Yes (Hospitalization)
  Sender: FDA-Public Use
  Company Number: US-ACTELION-A-US2016-143736

PATIENT
  Sex: Female
  Weight: 74.83 kg

DRUGS (6)
  1. VELETRI [Suspect]
     Active Substance: EPOPROSTENOL
     Dosage: 27 NG/KG, PER MIN
     Route: 042
  2. MYCOPHENOLATE [Concomitant]
     Active Substance: MYCOPHENOLIC ACID
  3. VELETRI [Suspect]
     Active Substance: EPOPROSTENOL
     Dosage: 27 NG/KG, PER MIN
     Route: 042
  4. ADCIRCA [Concomitant]
     Active Substance: TADALAFIL
  5. VELETRI [Suspect]
     Active Substance: EPOPROSTENOL
     Indication: PULMONARY ARTERIAL HYPERTENSION
     Dosage: 16 NG/KG, PER MIN
     Route: 042
     Dates: start: 20151028
  6. VELETRI [Suspect]
     Active Substance: EPOPROSTENOL
     Dosage: UNK
     Route: 042

REACTIONS (19)
  - Vomiting [Unknown]
  - Hyponatraemia [Unknown]
  - Temporomandibular joint syndrome [Unknown]
  - Back pain [Unknown]
  - Pain in jaw [Unknown]
  - Constipation [Unknown]
  - Fatigue [Unknown]
  - Swelling face [Unknown]
  - Dyspnoea exertional [Unknown]
  - Diarrhoea [Unknown]
  - Cellulitis [Unknown]
  - Trigeminal neuralgia [Not Recovered/Not Resolved]
  - Blood potassium decreased [Unknown]
  - Infection [Unknown]
  - Pain [Unknown]
  - Decreased activity [Unknown]
  - Heart rate irregular [Recovered/Resolved]
  - Swelling [Unknown]
  - Sinusitis [Unknown]
